FAERS Safety Report 5101019-8 (Version None)
Quarter: 2006Q3

REPORT INFORMATION
  Report Type: 
  Country: None (occurrence: None)
  Receive Date: 20060911
  Receipt Date: 20060901
  Transmission Date: 20061208
  Serious: Yes (Death, Hospitalization)
  Sender: FDA-Public Use
  Company Number: CH-JNJFOC-20060504421

PATIENT
  Age: 38 Year
  Sex: Male

DRUGS (3)
  1. HALDOL [Suspect]
     Indication: SCHIZOTYPAL PERSONALITY DISORDER
     Route: 030
  2. ZYPREXA [Suspect]
     Indication: SCHIZOTYPAL PERSONALITY DISORDER
     Route: 048
  3. PRAZINE [Suspect]
     Indication: SCHIZOTYPAL PERSONALITY DISORDER
     Route: 048

REACTIONS (2)
  - LARYNGEAL OEDEMA [None]
  - RESPIRATORY DISTRESS [None]
